FAERS Safety Report 4699537-X (Version None)
Quarter: 2005Q2

REPORT INFORMATION
  Report Type: 
  Country: None (occurrence: None)
  Receive Date: 20050622
  Receipt Date: 20050606
  Transmission Date: 20051028
  Serious: Yes (Other)
  Sender: FDA-Public Use
  Company Number: ENT 2005-0074

PATIENT
  Age: 74 Year
  Sex: Male

DRUGS (2)
  1. COMTAN [Suspect]
     Indication: PARKINSON'S DISEASE
     Dosage: 800 MG ORAL
     Route: 048
  2. MODOPAR [Concomitant]

REACTIONS (5)
  - CONFUSIONAL STATE [None]
  - CONSTIPATION [None]
  - FALL [None]
  - HALLUCINATIONS, MIXED [None]
  - MUSCLE CONTRACTIONS INVOLUNTARY [None]
